FAERS Safety Report 26173200 (Version 2)
Quarter: 2025Q4

REPORT INFORMATION
  Report Type: Spontaneous
  Country: US (occurrence: US)
  Receive Date: 20251218
  Receipt Date: 20251218
  Transmission Date: 20260119
  Serious: Yes (Hospitalization)
  Sender: ROCHE
  Company Number: US-ROCHE-10000456768

PATIENT
  Age: 82 Year
  Sex: Male

DRUGS (9)
  1. ACTEMRA ACTPEN [Suspect]
     Active Substance: TOCILIZUMAB
     Indication: Giant cell arteritis
     Dosage: 162 MG/0.9 ML?INJECT 0.9 ML (162 MG TOTAL) UNDER THE SKIN EVERY 7 DAYS
     Route: 058
     Dates: start: 20250204
  2. VITAMINS [Concomitant]
     Active Substance: VITAMINS
  3. CYMBALTA [Concomitant]
     Active Substance: DULOXETINE HYDROCHLORIDE
  4. ELIQUIS [Concomitant]
     Active Substance: APIXABAN
  5. LAMICTAL [Concomitant]
     Active Substance: LAMOTRIGINE
  6. METOPROLOL TARTRATE [Concomitant]
     Active Substance: METOPROLOL TARTRATE
  7. PREDNISONE [Concomitant]
     Active Substance: PREDNISONE
  8. SPIRONOLACTONE [Concomitant]
     Active Substance: SPIRONOLACTONE
  9. XANAX [Concomitant]
     Active Substance: ALPRAZOLAM

REACTIONS (3)
  - Infection [Unknown]
  - Product dose omission issue [Unknown]
  - Discomfort [Unknown]
